FAERS Safety Report 8429064 (Version 4)
Quarter: 2012Q4

REPORT INFORMATION
  Report Type: Report from Study
  Country: JP (occurrence: JP)
  Receive Date: 20120227
  Receipt Date: 20121026
  Transmission Date: 20130627
  Serious: Yes (Death, Other)
  Sender: FDA-Public Use
  Company Number: PHHY2012JP015837

PATIENT
  Age: 45 Year
  Sex: Female
  Weight: 65 kg

DRUGS (38)
  1. LEPONEX / CLOZARIL [Suspect]
     Indication: SCHIZOPHRENIA
     Dosage: 12.5 mg, daily
     Route: 048
     Dates: start: 20110708, end: 20110708
  2. LEPONEX / CLOZARIL [Suspect]
     Dosage: 25 mg, daily
     Route: 048
     Dates: start: 20110709, end: 20110711
  3. LEPONEX / CLOZARIL [Suspect]
     Dosage: 50 mg, daily
     Route: 048
     Dates: start: 20110712, end: 20110721
  4. LEPONEX / CLOZARIL [Suspect]
     Dosage: 75 mg, daily
     Route: 048
     Dates: start: 20110722, end: 20110723
  5. LEPONEX / CLOZARIL [Suspect]
     Dosage: 100 mg, daily
     Route: 048
     Dates: start: 20110724, end: 20110725
  6. LEPONEX / CLOZARIL [Suspect]
     Dosage: 125 mg, daily
     Route: 048
     Dates: start: 20110726, end: 20110728
  7. LEPONEX / CLOZARIL [Suspect]
     Dosage: 150 mg, daily
     Route: 048
     Dates: start: 20110729, end: 20110731
  8. LEPONEX / CLOZARIL [Suspect]
     Dosage: 175 mg, daily
     Route: 048
     Dates: start: 20110801, end: 20110803
  9. LEPONEX / CLOZARIL [Suspect]
     Dosage: 200 mg, daily
     Route: 048
     Dates: start: 20110804, end: 20110804
  10. LEPONEX / CLOZARIL [Suspect]
     Dosage: 300 mg, daily
     Route: 048
     Dates: start: 20110805, end: 20110811
  11. LEPONEX / CLOZARIL [Suspect]
     Dosage: 325 mg, daily
     Route: 048
     Dates: start: 20110812, end: 20110818
  12. LEPONEX / CLOZARIL [Suspect]
     Dosage: 400 mg, daily
     Route: 048
     Dates: start: 20110819, end: 20110922
  13. LEPONEX / CLOZARIL [Suspect]
     Dosage: 500 mg, daily
     Route: 048
     Dates: start: 20110923, end: 20111201
  14. LEPONEX / CLOZARIL [Suspect]
     Dosage: 600 mg, daily
     Route: 048
     Dates: start: 20111202
  15. ACETAMINOPHEN [Concomitant]
     Indication: INFLUENZA
     Dosage: 400 mg, UNK
     Route: 048
     Dates: start: 20120219
  16. MEDICON (DEXTROMETHORPHAN HYDROBROMIDE) [Concomitant]
     Indication: INFLUENZA
     Dosage: 3 DF, for 5 days
     Route: 048
     Dates: start: 20120219
  17. MAGNESIUM OXIDE [Concomitant]
     Indication: CONSTIPATION
     Dosage: 1500 mg, UNK
     Route: 048
  18. SENNOSIDE [Concomitant]
     Indication: CONSTIPATION
     Dosage: 24 mg, UNK
     Route: 048
  19. BLADDERON [Concomitant]
     Dosage: 600 mg, UNK
     Route: 048
  20. TSUMURA DAI-KENCHU-TO [Concomitant]
     Indication: CONSTIPATION
     Dosage: 3 DF, UNK
     Route: 048
  21. TSUMURA DAI-KENCHU-TO [Concomitant]
     Dosage: 7500 mg, UNK
     Route: 048
  22. LEUCON [Concomitant]
     Dosage: 60 mg, UNK
     Route: 048
  23. LIMAS [Concomitant]
     Dosage: 400 mg, UNK
     Route: 048
  24. FERO-GRADUMET [Concomitant]
     Dosage: 1 DF, UNK
     Route: 048
  25. FERO-GRADUMET [Concomitant]
     Dosage: 105 mg, UNK
     Route: 048
  26. TERBINAFINE HYDROCHLORIDE [Concomitant]
     Dosage: 2 mg, UNK
     Route: 048
  27. PAXIL [Concomitant]
     Dosage: 20 mg, UNK
     Route: 048
  28. ROHYPNOL [Concomitant]
     Dosage: 2 mg, UNK
     Route: 048
  29. DORAL [Concomitant]
     Dosage: 15 mg, UNK
     Route: 048
  30. WYPAX [Concomitant]
     Dosage: 3 mg, UNK
     Route: 048
     Dates: start: 20091214, end: 20111102
  31. ZYPREXA [Concomitant]
     Dosage: 20 mg, UNK
     Route: 048
     Dates: start: 20040924
  32. ZYPREXA [Concomitant]
     Dosage: 10 mg, UNK
     Route: 048
  33. ZYPREXA [Concomitant]
     Dosage: 5 mg, UNK
     Route: 048
     Dates: end: 20110813
  34. SETOUS [Concomitant]
     Dosage: 300 mg, UNK
     Route: 048
     Dates: start: 20091214
  35. SETOUS [Concomitant]
     Dosage: 150 mg, UNK
     Route: 048
  36. SETOUS [Concomitant]
     Dosage: 75 mg, UNK
     Route: 048
     Dates: end: 20110910
  37. LEVOTOMIN [Concomitant]
     Dosage: 50 mg, UNK
     Route: 048
     Dates: start: 20090301, end: 20110924
  38. RISPERDAL [Concomitant]
     Dosage: 8 mg, UNK
     Route: 048
     Dates: start: 20110824, end: 20110906

REACTIONS (18)
  - Myocardial infarction [Fatal]
  - Cardio-respiratory arrest [Fatal]
  - Sudden death [Fatal]
  - Asphyxia [Unknown]
  - Aspiration [Unknown]
  - Intestinal obstruction [Unknown]
  - Abdominal distension [Unknown]
  - Influenza A virus test positive [Unknown]
  - Lymphocyte count decreased [Unknown]
  - Red blood cell count decreased [Unknown]
  - Gastrointestinal disorder [Unknown]
  - Vomiting [Recovered/Resolved]
  - Diarrhoea [Unknown]
  - White blood cell count increased [Recovered/Resolved]
  - Neutrophil count increased [Recovered/Resolved]
  - Haemoglobin decreased [Unknown]
  - Blood glucose increased [Unknown]
  - Pyrexia [Unknown]
